FAERS Safety Report 7229480-3 (Version None)
Quarter: 2011Q1

REPORT INFORMATION
  Report Type: 
  Country: None (occurrence: None)
  Receive Date: 20110117
  Receipt Date: 20100115
  Transmission Date: 20110831
  Serious: No
  Sender: FDA-Public Use
  Company Number: US-TYCO HEALTHCARE/MALLINCKRODT-T201000342

PATIENT
  Sex: Female
  Weight: 53.515 kg

DRUGS (4)
  1. SYNTHROID [Concomitant]
  2. NEXIUM [Concomitant]
  3. OPTIRAY 350 [Suspect]
     Indication: ANGIOGRAM
     Dosage: 65 ML, SINGLE, 4.2 ML/SEC
     Route: 042
     Dates: start: 20091204, end: 20091204
  4. CALCIUM W/VITAMINS NOS [Concomitant]

REACTIONS (4)
  - DIZZINESS [None]
  - PARAESTHESIA [None]
  - ABDOMINAL PAIN [None]
  - FLUSHING [None]
